FAERS Safety Report 5022223-3 (Version None)
Quarter: 2006Q2

REPORT INFORMATION
  Report Type: 
  Country: None (occurrence: None)
  Receive Date: 20060503
  Receipt Date: 20050623
  Transmission Date: 20061013
  Serious: Yes (Other)
  Sender: FDA-Public Use
  Company Number: 2005RL000072

PATIENT
  Age: 61 Year
  Sex: Female

DRUGS (2)
  1. ISRADIPINE [Suspect]
     Indication: HYPERTENSION
     Dosage: 5 MG;QD;PO
     Route: 048
     Dates: start: 20050324, end: 20050413
  2. FENOFIBRATE [Concomitant]

REACTIONS (2)
  - HEADACHE [None]
  - OEDEMA PERIPHERAL [None]
